FAERS Safety Report 9196117 (Version 3)
Quarter: 2013Q3

REPORT INFORMATION
  Report Type: Report from Study
  Country: US (occurrence: US)
  Receive Date: 20130328
  Receipt Date: 20130924
  Transmission Date: 20140515
  Serious: Yes (Hospitalization)
  Sender: FDA-Public Use
  Company Number: US-UCBSA-081651

PATIENT
  Age: 65 Year
  Sex: Male
  Weight: 79.3 kg

DRUGS (11)
  1. CIMZIA [Suspect]
     Indication: CROHN^S DISEASE
     Route: 058
     Dates: start: 20110817, end: 20130206
  2. PREDNISONE [Concomitant]
     Indication: CROHN^S DISEASE
     Dates: start: 19980724, end: 20100809
  3. PREDNISONE [Concomitant]
     Indication: CROHN^S DISEASE
     Dates: start: 201107
  4. ACETAMINOPHEN [Concomitant]
     Indication: CROHN^S DISEASE
  5. LOPERAMIDE [Concomitant]
     Indication: CROHN^S DISEASE
  6. PEPTO BISMOL [Concomitant]
     Indication: CROHN^S DISEASE
  7. ACTIVATED CHARCOAL [Concomitant]
     Indication: CROHN^S DISEASE
  8. ACTIVATED CHARCOAL [Concomitant]
     Indication: CROHN^S DISEASE
  9. DONNATAL [Concomitant]
  10. LOMOTIL [Concomitant]
  11. LOMOTIL [Concomitant]

REACTIONS (1)
  - Abdominal abscess [Recovering/Resolving]
